FAERS Safety Report 19260449 (Version 8)
Quarter: 2024Q4

REPORT INFORMATION
  Report Type: Spontaneous
  Country: US (occurrence: US)
  Receive Date: 20210514
  Receipt Date: 20241211
  Transmission Date: 20250115
  Serious: Yes (Hospitalization, Other)
  Sender: PFIZER
  Company Number: US-PFIZER INC-2021438528

PATIENT
  Age: 80 Year
  Sex: Female
  Weight: 63.492 kg

DRUGS (3)
  1. VYNDAMAX [Suspect]
     Active Substance: TAFAMIDIS
     Indication: Amyloidosis
     Dosage: 61 MG
  2. VYNDAMAX [Suspect]
     Active Substance: TAFAMIDIS
     Dosage: 61 MG, 1X/DAY
     Route: 048
  3. ELIQUIS [Concomitant]
     Active Substance: APIXABAN
     Indication: Atrial fibrillation
     Dosage: 5 MG, 2X/DAY
     Route: 048

REACTIONS (18)
  - Joint injury [Unknown]
  - Fall [Unknown]
  - Hip fracture [Unknown]
  - Autoimmune disorder [Unknown]
  - Pneumonia [Recovering/Resolving]
  - Amyloidosis [Unknown]
  - Renal failure [Unknown]
  - Quality of life decreased [Unknown]
  - Myocardial fibrosis [Unknown]
  - Malaise [Unknown]
  - Nausea [Unknown]
  - Dyspnoea [Unknown]
  - Pain [Unknown]
  - Loss of personal independence in daily activities [Unknown]
  - COVID-19 [Recovering/Resolving]
  - Movement disorder [Unknown]
  - Amnesia [Unknown]
  - Illness [Unknown]

NARRATIVE: CASE EVENT DATE: 20220201
